FAERS Safety Report 7304965-X (Version None)
Quarter: 2011Q1

REPORT INFORMATION
  Report Type: 
  Country: None (occurrence: None)
  Receive Date: 20110222
  Receipt Date: 20110209
  Transmission Date: 20110831
  Serious: Yes (Other)
  Sender: FDA-Public Use
  Company Number: US-CELGENEUS-163-21880-11021496

PATIENT
  Sex: Male
  Weight: 111.4 kg

DRUGS (1)
  1. REVLIMID [Suspect]
     Indication: MULTIPLE MYELOMA
     Route: 048
     Dates: start: 20110112

REACTIONS (4)
  - SCAPULA FRACTURE [None]
  - GAIT DISTURBANCE [None]
  - SOMNOLENCE [None]
  - FALL [None]
